FAERS Safety Report 8760935 (Version 2)
Quarter: 2012Q4

REPORT INFORMATION
  Report Type: 
  Country: MX (occurrence: MX)
  Receive Date: 20120830
  Receipt Date: 20120903
  Transmission Date: 20130627
  Serious: Yes (Death, Hospitalization)
  Sender: FDA-Public Use
  Company Number: PHHY2012MX074766

PATIENT
  Age: 83 Year
  Sex: Male

DRUGS (3)
  1. ONBREZ [Suspect]
     Indication: CHRONIC OBSTRUCTIVE PULMONARY DISEASE
     Dosage: 300 ug, QD
     Dates: start: 20120209
  2. PROMETHAZINE HYDROCHLORIDE [Concomitant]
     Indication: ARRHYTHMIA
     Dosage: 2 DF, QD
     Dates: start: 2011
  3. PROMETHAZINE HYDROCHLORIDE [Concomitant]
     Indication: CHRONIC OBSTRUCTIVE PULMONARY DISEASE

REACTIONS (3)
  - Infarction [Fatal]
  - Arrhythmia [Unknown]
  - Chest pain [Unknown]
